FAERS Safety Report 13347781 (Version 1)
Quarter: 2017Q1

REPORT INFORMATION
  Report Type: Spontaneous
  Country: FR (occurrence: FR)
  Receive Date: 20170317
  Receipt Date: 20170317
  Transmission Date: 20170428
  Serious: Yes (Death)
  Sender: FDA-Public Use
  Company Number: FR-009507513-1703FRA008179

PATIENT
  Age: 78 Year
  Sex: Female

DRUGS (11)
  1. JANUVIA [Suspect]
     Active Substance: SITAGLIPTIN PHOSPHATE
     Indication: DIABETES MELLITUS
     Dosage: 100 MG, QD
     Route: 048
     Dates: end: 20170214
  2. PLAVIX [Concomitant]
     Active Substance: CLOPIDOGREL BISULFATE
     Dosage: UNK
  3. STAGID [Suspect]
     Active Substance: METFORMIN PAMOATE
     Indication: DIABETES MELLITUS
     Dosage: 3 DF, QD
     Route: 048
     Dates: end: 20170214
  4. NOVORAPID [Concomitant]
     Active Substance: INSULIN ASPART
     Dosage: UNK
  5. DULOXETINE HYDROCHLORIDE. [Suspect]
     Active Substance: DULOXETINE HYDROCHLORIDE
     Dosage: 30 MG, QD
     Route: 048
     Dates: end: 20170214
  6. INSULATARD (INSULIN, ISOPHANE) [Concomitant]
     Active Substance: INSULIN HUMAN
     Dosage: UNK
  7. LERCAN [Suspect]
     Active Substance: LERCANIDIPINE
     Indication: HYPERTENSION
     Dosage: 10 MG, QD
     Route: 048
     Dates: end: 20170214
  8. HYPERIUM [Suspect]
     Active Substance: RILMENIDINE PHOSPHATE
     Indication: HYPERTENSION
     Dosage: 1 DF, BID
     Route: 048
     Dates: end: 20170214
  9. METOPROLOL TARTRATE. [Suspect]
     Active Substance: METOPROLOL TARTRATE
     Indication: HYPERTENSION
     Dosage: 200 MG, QD
     Route: 048
     Dates: end: 20170214
  10. PANTOPRAZOLE [Concomitant]
     Active Substance: PANTOPRAZOLE SODIUM
     Dosage: UNK
  11. HYDROCHLOROTHIAZIDE. [Suspect]
     Active Substance: HYDROCHLOROTHIAZIDE
     Indication: HYPERTENSION
     Dosage: 25 MG, QD
     Route: 048
     Dates: end: 20170214

REACTIONS (1)
  - Lactic acidosis [Fatal]

NARRATIVE: CASE EVENT DATE: 20170214
